FAERS Safety Report 13654002 (Version 1)
Quarter: 2017Q2

REPORT INFORMATION
  Report Type: Spontaneous
  Country: HR (occurrence: HR)
  Receive Date: 20170614
  Receipt Date: 20170614
  Transmission Date: 20170830
  Serious: Yes (Hospitalization, Other)
  Sender: FDA-Public Use
  Company Number: HR-BAYER-2017-107825

PATIENT
  Age: 75 Year
  Sex: Male

DRUGS (4)
  1. RAMIPRIL. [Concomitant]
     Active Substance: RAMIPRIL
  2. ASPIRIN PROTECT 100 MG [Suspect]
     Active Substance: ASPIRIN
     Dosage: 3 DF, UNK
  3. NITRAZEPAM [Concomitant]
     Active Substance: NITRAZEPAM
  4. ATORVASTATIN [Concomitant]
     Active Substance: ATORVASTATIN

REACTIONS (5)
  - Dysarthria [None]
  - Hemiplegia [None]
  - Urinary tract infection [None]
  - Facial nerve disorder [None]
  - Dehydration [None]
